FAERS Safety Report 9632356 (Version 2)
Quarter: 2013Q4

REPORT INFORMATION
  Report Type: Spontaneous
  Country: FR (occurrence: None)
  Receive Date: 20131016
  Receipt Date: 20131029
  Transmission Date: 20140711
  Serious: Yes (Life-Threatening, Hospitalization, Other)
  Sender: FDA-Public Use
  Company Number: FR-013239

PATIENT
  Age: 58 Year
  Sex: Male
  Weight: 91 kg

DRUGS (4)
  1. FIRMAGON [Suspect]
     Indication: PROSTATE CANCER METASTATIC
     Route: 058
     Dates: start: 20130929, end: 20130929
  2. BISOPROLOL [Concomitant]
  3. FLECAIN [Concomitant]
  4. SINTROM [Concomitant]

REACTIONS (2)
  - Cardiac arrest [None]
  - Arrhythmia [None]
